FAERS Safety Report 5084278-X (Version None)
Quarter: 2006Q3

REPORT INFORMATION
  Report Type: 
  Country: None (occurrence: None)
  Receive Date: 20060817
  Receipt Date: 20060817
  Transmission Date: 20061208
  Serious: No
  Sender: FDA-Public Use
  Company Number: None

PATIENT

DRUGS (2)
  1. CEFTRIAXONE [Suspect]
  2. CEFTRIAXONE [Suspect]

REACTIONS (1)
  - CULTURE POSITIVE [None]
